FAERS Safety Report 9576971 (Version 2)
Quarter: 2013Q4

REPORT INFORMATION
  Report Type: Spontaneous
  Country: US (occurrence: US)
  Receive Date: 20131001
  Receipt Date: 20131001
  Transmission Date: 20140711
  Serious: Yes (Other)
  Sender: FDA-Public Use
  Company Number: US-AMGEN-USASP2013000516

PATIENT
  Age: 44 Year
  Sex: Female
  Weight: 83.9 kg

DRUGS (10)
  1. ENBREL [Suspect]
     Indication: RHEUMATOID ARTHRITIS
     Dosage: 50 MG, QWK
     Route: 058
     Dates: end: 20121011
  2. ZITHROMAX [Concomitant]
     Dosage: UNK
  3. CELEXA                             /00582602/ [Concomitant]
     Dosage: 10 MG, UNK
  4. KLONOPIN [Concomitant]
     Dosage: 0.5 MG, UNK
  5. VESICARE [Concomitant]
     Dosage: 10 MG, UNK
  6. OMEPRAZOLE [Concomitant]
     Dosage: 10 MG, UNK
  7. VITAMIN D                          /00107901/ [Concomitant]
     Dosage: 1000 UNIT, UNK
  8. RESTASIS [Concomitant]
     Dosage: 0.05 %, UNK
  9. VITAMIN B12                        /00056201/ [Concomitant]
     Dosage: 1000 UNK, UNK
  10. SELEGILINE [Concomitant]
     Dosage: 5 MG, UNK

REACTIONS (3)
  - Wound infection staphylococcal [Recovering/Resolving]
  - Carpal tunnel syndrome [Recovering/Resolving]
  - Influenza [Unknown]
